FAERS Safety Report 8203506-2 (Version None)
Quarter: 2012Q1

REPORT INFORMATION
  Report Type: 
  Country: None (occurrence: None)
  Receive Date: 20120313
  Receipt Date: 20120307
  Transmission Date: 20120608
  Serious: No
  Sender: FDA-Public Use
  Company Number: US-BIOGENIDEC-2010BI010386

PATIENT
  Sex: Female

DRUGS (2)
  1. TYSABRI [Suspect]
     Route: 042
     Dates: start: 20120216
  2. TYSABRI [Suspect]
     Indication: MULTIPLE SCLEROSIS
     Route: 042
     Dates: start: 20080305, end: 20101124

REACTIONS (8)
  - TOOTH DISORDER [None]
  - DIABETES MELLITUS [None]
  - MIGRAINE [None]
  - INFLUENZA [None]
  - NASOPHARYNGITIS [None]
  - RASH [None]
  - FALL [None]
  - PRURITUS [None]
